FAERS Safety Report 5026554-2 (Version None)
Quarter: 2006Q2

REPORT INFORMATION
  Report Type: 
  Country: None (occurrence: None)
  Receive Date: 20060426
  Receipt Date: 20060302
  Transmission Date: 20061013
  Serious: Yes (Other)
  Sender: FDA-Public Use
  Company Number: 2006032881

PATIENT
  Age: 42 Year
  Sex: Female
  Weight: 51.2565 kg

DRUGS (5)
  1. LYRICA [Suspect]
     Indication: TRIGEMINAL NEURALGIA
     Dosage: 150 MG (75 MG, 2 IN 1 D), ORAL
     Route: 048
     Dates: start: 20060101
  2. ANTIHISTAMINES (ANTIHISTAMINES) [Concomitant]
  3. DECONGESTANTS AND ANTIALLERGICS (DECONGESTANTS AND ANTIALLERGICS) [Concomitant]
  4. VITAMINS (VITAMINS) [Concomitant]
  5. ZOVIA (ETHINYLESTRADIOL, ETYNODIOL DIACETATE) [Concomitant]

REACTIONS (1)
  - SWELLING [None]
